FAERS Safety Report 10276055 (Version 2)
Quarter: 2014Q3

REPORT INFORMATION
  Report Type: Report from Study
  Country: US (occurrence: US)
  Receive Date: 20140703
  Receipt Date: 20140703
  Transmission Date: 20150326
  Serious: Yes (Other)
  Sender: FDA-Public Use
  Company Number: US-BAYER-2014-088405

PATIENT
  Age: 29 Year
  Sex: Female

DRUGS (2)
  1. MIRENA [Suspect]
     Active Substance: LEVONORGESTREL
     Indication: CONTRACEPTION
     Dosage: 20 MCG/24HR, CONT
     Route: 015
     Dates: end: 20140606
  2. MIRENA [Suspect]
     Active Substance: LEVONORGESTREL
     Indication: CONTRACEPTION
     Dosage: 20 MCG/24HR, CONT
     Route: 015
     Dates: start: 201308, end: 20140606

REACTIONS (8)
  - Genital haemorrhage [None]
  - Device issue [None]
  - Device use error [None]
  - Pain [None]
  - Adverse event [None]
  - Incorrect dose administered by device [None]
  - Abdominal pain lower [None]
  - Emotional distress [None]

NARRATIVE: CASE EVENT DATE: 201308
